FAERS Safety Report 8274169-5 (Version None)
Quarter: 2012Q2

REPORT INFORMATION
  Report Type: 
  Country: None (occurrence: None)
  Receive Date: 20120411
  Receipt Date: 20120402
  Transmission Date: 20120825
  Serious: Yes (Other)
  Sender: FDA-Public Use
  Company Number: US-ASTRAZENECA-2012SE00584

PATIENT
  Age: 66 Year
  Sex: Female

DRUGS (11)
  1. LORTAB [Concomitant]
     Dosage: 7.5 EVERY SIX HOURS PRN
  2. ZYPREXA [Concomitant]
  3. QVAR 40 [Concomitant]
  4. AEROSOL [Concomitant]
     Dosage: ONE PUFF BID
  5. PROAIR HFA [Concomitant]
     Dosage: 108, 90MCG TWO PUFFS QID PRN
  6. ALPRAZOLAM [Concomitant]
     Route: 048
  7. REQUIP [Concomitant]
  8. ATACAND [Suspect]
     Route: 048
  9. WELLBUTRIN SR [Concomitant]
  10. NEXIUM [Suspect]
     Route: 048
  11. LEXAPRO [Concomitant]

REACTIONS (12)
  - BACK PAIN [None]
  - TYPE 2 DIABETES MELLITUS [None]
  - DEPRESSION [None]
  - ANXIETY [None]
  - VISUAL ACUITY REDUCED [None]
  - RESTLESS LEGS SYNDROME [None]
  - TREMOR [None]
  - ARTHRALGIA [None]
  - CHRONIC MYELOID LEUKAEMIA [None]
  - CATARACT [None]
  - FATIGUE [None]
  - INSOMNIA [None]
